FAERS Safety Report 19053321 (Version 3)
Quarter: 2021Q2

REPORT INFORMATION
  Report Type: Spontaneous
  Country: US (occurrence: US)
  Receive Date: 20210325
  Receipt Date: 20210415
  Transmission Date: 20210717
  Serious: No
  Sender: FDA-Public Use
  Company Number: US-JNJFOC-20210332373

PATIENT
  Age: 10 Decade
  Sex: Female

DRUGS (1)
  1. ZYRTEC [Suspect]
     Active Substance: CETIRIZINE HYDROCHLORIDE
     Indication: OROPHARYNGEAL PAIN
     Dosage: A LONG TIME AGO
     Route: 065

REACTIONS (3)
  - Product use in unapproved indication [Unknown]
  - Product lot number issue [Unknown]
  - Product expiration date issue [Unknown]
